FAERS Safety Report 6706885-8 (Version None)
Quarter: 2010Q2

REPORT INFORMATION
  Report Type: 
  Country: None (occurrence: None)
  Receive Date: 20100503
  Receipt Date: 20100421
  Transmission Date: 20101027
  Serious: Yes (Other)
  Sender: FDA-Public Use
  Company Number: US-PFIZER INC-2010050769

PATIENT
  Sex: Male
  Weight: 74.83 kg

DRUGS (4)
  1. LYRICA [Suspect]
     Indication: NEURALGIA
     Dosage: 200 MG, 3X/DAY
     Route: 048
     Dates: start: 20090901
  2. LYRICA [Suspect]
     Dosage: 200 MG, 1X/DAY
     Route: 048
     Dates: end: 20100401
  3. PREVACID [Concomitant]
     Indication: GASTROOESOPHAGEAL REFLUX DISEASE
     Dosage: 30 MG, 2X/DAY
     Route: 048
  4. IBUPROFEN [Concomitant]
     Indication: NEURALGIA
     Dosage: 400 MG, UNK
     Route: 048

REACTIONS (3)
  - HEART RATE INCREASED [None]
  - INSOMNIA [None]
  - RESTLESS LEGS SYNDROME [None]
